FAERS Safety Report 18249231 (Version 1)
Quarter: 2020Q3

REPORT INFORMATION
  Report Type: Other
  Country: AU (occurrence: AU)
  Receive Date: 20200909
  Receipt Date: 20200909
  Transmission Date: 20201103
  Serious: Yes (Hospitalization)
  Sender: FDA-Public Use
  Company Number: AU-COLLEGIUM PHARMACEUTICAL, INC.-2020CGM00160

PATIENT
  Age: 41 Year
  Sex: Female

DRUGS (3)
  1. PANADOL [Concomitant]
     Active Substance: ACETAMINOPHEN
  2. NUCYNTA [Suspect]
     Active Substance: TAPENTADOL HYDROCHLORIDE
     Indication: ABDOMINAL PAIN
     Dosage: 1 TABLETS AT 7:30PM AFTER DINNER
     Route: 048
     Dates: start: 20200424, end: 20200424
  3. PANADEINE FORTE [Concomitant]
     Active Substance: ACETAMINOPHEN\CODEINE PHOSPHATE

REACTIONS (17)
  - Dizziness [Unknown]
  - Disorientation [Not Recovered/Not Resolved]
  - Headache [Recovering/Resolving]
  - Confusional state [Unknown]
  - Pain [Unknown]
  - Presyncope [Unknown]
  - Blood pressure decreased [Recovering/Resolving]
  - Malaise [Unknown]
  - Blood pressure increased [Unknown]
  - Nausea [Not Recovered/Not Resolved]
  - Hypoaesthesia [Unknown]
  - Skin sensitisation [Unknown]
  - Vision blurred [Unknown]
  - Dysarthria [Unknown]
  - Nightmare [Unknown]
  - Vomiting [Unknown]
  - Syncope [Unknown]

NARRATIVE: CASE EVENT DATE: 20200424
